FAERS Safety Report 9486157 (Version 1)
Quarter: 2013Q3

REPORT INFORMATION
  Report Type: Spontaneous
  Country: US (occurrence: None)
  Receive Date: 20130827
  Receipt Date: 20130827
  Transmission Date: 20140515
  Serious: No
  Sender: FDA-Public Use
  Company Number: None

PATIENT
  Age: 67 Year
  Sex: Female
  Weight: 63.5 kg

DRUGS (1)
  1. ATELVIA [Suspect]
     Indication: OSTEOPOROSIS
     Dosage: 1 PILL WEEKLY
     Route: 048
     Dates: start: 20130821, end: 20130828

REACTIONS (7)
  - Abdominal pain [None]
  - Decreased appetite [None]
  - Nausea [None]
  - Retching [None]
  - Vomiting [None]
  - Aphagia [None]
  - Constipation [None]
